FAERS Safety Report 5904746-5 (Version None)
Quarter: 2008Q3

REPORT INFORMATION
  Report Type: 
  Country: None (occurrence: None)
  Receive Date: 20080909
  Receipt Date: 20080429
  Transmission Date: 20090109
  Serious: Yes (Death)
  Sender: FDA-Public Use
  Company Number: 163-20785-08031069

PATIENT
  Age: 70 Year
  Sex: Female

DRUGS (2)
  1. THALIDOMIDE [Suspect]
     Indication: LUNG NEOPLASM MALIGNANT
     Dosage: 50 MG, QD, ORAL : 100 MG, QD, ORAL
     Route: 048
     Dates: start: 20061003, end: 20071105
  2. THALIDOMIDE [Suspect]
     Indication: LUNG NEOPLASM MALIGNANT
     Dosage: 50 MG, QD, ORAL : 100 MG, QD, ORAL
     Route: 048
     Dates: start: 20050330

REACTIONS (1)
  - DISEASE PROGRESSION [None]
